FAERS Safety Report 10726307 (Version 1)
Quarter: 2015Q1

REPORT INFORMATION
  Report Type: Spontaneous
  Country: CH (occurrence: CH)
  Receive Date: 20150121
  Receipt Date: 20150121
  Transmission Date: 20150721
  Serious: Yes (Other)
  Sender: FDA-Public Use
  Company Number: PHHY2015CH005897

PATIENT
  Sex: Male

DRUGS (2)
  1. CLOPIN ECO [Suspect]
     Active Substance: CLOZAPINE
     Dosage: 450 MG, QD
     Route: 065
  2. CLOPIN ECO [Suspect]
     Active Substance: CLOZAPINE
     Indication: PRODUCT USED FOR UNKNOWN INDICATION
     Dosage: 500 MG, QD
     Route: 065

REACTIONS (4)
  - Hallucination, auditory [Unknown]
  - Loss of consciousness [Unknown]
  - Drug ineffective [Unknown]
  - Heart rate increased [Unknown]
